FAERS Safety Report 5937886-5 (Version None)
Quarter: 2008Q4

REPORT INFORMATION
  Report Type: 
  Country: None (occurrence: None)
  Receive Date: 20081031
  Receipt Date: 20081020
  Transmission Date: 20090506
  Serious: Yes (Hospitalization)
  Sender: FDA-Public Use
  Company Number: BE-PFIZER INC-2008088357

PATIENT
  Age: 86 Year
  Sex: Female
  Weight: 66 kg

DRUGS (2)
  1. ZYVOXID [Suspect]
     Indication: CENTRAL NERVOUS SYSTEM INFECTION
     Route: 048
     Dates: start: 20080916, end: 20081006
  2. TAVANIC [Concomitant]
     Dates: start: 20080828, end: 20081006

REACTIONS (2)
  - HAEMATEMESIS [None]
  - PANCYTOPENIA [None]
